FAERS Safety Report 9931861 (Version 3)
Quarter: 2014Q2

REPORT INFORMATION
  Report Type: Report from Study
  Country: DE (occurrence: DE)
  Receive Date: 20140228
  Receipt Date: 20140505
  Transmission Date: 20141212
  Serious: Yes (Hospitalization)
  Sender: FDA-Public Use
  Company Number: DE-ASTELLAS-2014US001935

PATIENT
  Age: 71 Year
  Sex: Male

DRUGS (9)
  1. ERLOTINIB [Suspect]
     Indication: PANCREATIC CARCINOMA METASTATIC
     Route: 048
     Dates: start: 20140115, end: 20140214
  2. ERLOTINIB [Suspect]
     Dosage: UNK UNK, UNKNOWN FREQ.
     Route: 048
     Dates: end: 20140221
  3. ERLOTINIB [Suspect]
     Route: 048
     Dates: end: 20140328
  4. GEMCITABINE [Suspect]
     Indication: PANCREATIC CARCINOMA METASTATIC
     Dosage: 2100 MG, WEEKLY ON DAY 1,8 AND 15
     Route: 042
     Dates: start: 20140115, end: 20140129
  5. GEMCITABINE [Suspect]
     Dosage: 1592 MG, WEEKLY ON DAY 1,8 AND 15
     Route: 042
     Dates: end: 20140326
  6. DEXAMETHASON                       /00016001/ [Concomitant]
     Indication: NAUSEA
     Dosage: 8 MG, WEEKLY ON DAY 1,8 AND 15
     Route: 048
     Dates: start: 20140115, end: 20140326
  7. ALOXI [Concomitant]
     Indication: NAUSEA
     Dosage: 250 UG, WEEKLY ON DAY 1,8 AND 15
     Route: 042
     Dates: start: 20140115, end: 20140326
  8. TAVOR                              /00273201/ [Concomitant]
     Indication: PRODUCT USED FOR UNKNOWN INDICATION
     Dosage: UNK UNK, AS NEEDED
     Route: 065
  9. FENTANYL [Concomitant]
     Indication: PRODUCT USED FOR UNKNOWN INDICATION
     Dosage: UNK UNK, UNKNOWN FREQ.
     Route: 045

REACTIONS (6)
  - Dysuria [Recovered/Resolved]
  - Pollakiuria [Recovered/Resolved]
  - General physical health deterioration [Recovered/Resolved with Sequelae]
  - Weight decreased [Recovering/Resolving]
  - Ileus [Recovered/Resolved with Sequelae]
  - Incorrect dose administered [Unknown]
